FAERS Safety Report 5462977-5 (Version None)
Quarter: 2007Q3

REPORT INFORMATION
  Report Type: 
  Country: None (occurrence: None)
  Receive Date: 20070918
  Receipt Date: 20070918
  Transmission Date: 20080115
  Serious: Yes (Hospitalization, Other)
  Sender: FDA-Public Use
  Company Number: None

PATIENT
  Age: 51 Year
  Sex: Female

DRUGS (4)
  1. CHANTIX [Suspect]
     Indication: SMOKING CESSATION THERAPY
     Dosage: ORAL
     Route: 048
     Dates: start: 20070730, end: 20070814
  2. ZYRTEC [Suspect]
     Indication: HYPERSENSITIVITY
     Dosage: 10 MG (10 MG, 1 IN 1 D), ORAL
     Route: 048
     Dates: start: 20070820, end: 20070801
  3. BENADRYL [Suspect]
     Indication: HYPERSENSITIVITY
     Dosage: UNSPECIFIED, INTRAVENOUS
     Route: 042
     Dates: start: 20070801
  4. HYDROCODONE BITARTRATE [Concomitant]

REACTIONS (9)
  - DIZZINESS [None]
  - HYPERSENSITIVITY [None]
  - NAUSEA [None]
  - PHARYNGOLARYNGEAL PAIN [None]
  - POOR VENOUS ACCESS [None]
  - SKIN EXFOLIATION [None]
  - SOMNOLENCE [None]
  - TREMOR [None]
  - WHITE BLOOD CELL COUNT DECREASED [None]
